FAERS Safety Report 5357567-9 (Version None)
Quarter: 2007Q2

REPORT INFORMATION
  Report Type: 
  Country: None (occurrence: None)
  Receive Date: 20070614
  Receipt Date: 20070604
  Transmission Date: 20071010
  Serious: Yes (Other)
  Sender: FDA-Public Use
  Company Number: US-PFIZER INC-2007046485

PATIENT
  Sex: Female
  Weight: 74.8 kg

DRUGS (4)
  1. NEURONTIN [Suspect]
     Indication: CONVULSION
  2. ESTROGENIC SUBSTANCE [Concomitant]
  3. IBUPROFEN [Concomitant]
  4. TYLENOL [Concomitant]

REACTIONS (2)
  - MUSCULOSKELETAL STIFFNESS [None]
  - MYALGIA [None]
